FAERS Safety Report 5883395-1 (Version None)
Quarter: 2008Q3

REPORT INFORMATION
  Report Type: 
  Country: None (occurrence: None)
  Receive Date: 20080912
  Receipt Date: 20080912
  Transmission Date: 20090109
  Serious: Yes (Death, Life-Threatening, Hospitalization, Disabling, Other)
  Sender: FDA-Public Use
  Company Number: None

PATIENT
  Age: 31 Year
  Sex: Male
  Weight: 99.7913 kg

DRUGS (4)
  1. TRAZODONE HCL [Suspect]
     Indication: SCHIZOPHRENIA, PARANOID TYPE
     Dosage: VARIED 200 MG.
  2. SYMMETREL [Suspect]
     Indication: MAJOR DEPRESSION
     Dosage: VARIED 100 MG
  3. SYMMETREL [Suspect]
     Indication: STRESS
     Dosage: VARIED 100 MG
  4. HEROIN [Concomitant]

REACTIONS (15)
  - AGGRESSION [None]
  - ANTISOCIAL BEHAVIOUR [None]
  - COGNITIVE DISORDER [None]
  - CONDITION AGGRAVATED [None]
  - DISORIENTATION [None]
  - ECONOMIC PROBLEM [None]
  - HOMICIDE [None]
  - ILL-DEFINED DISORDER [None]
  - IMPRISONMENT [None]
  - MENTAL DISORDER [None]
  - MOOD ALTERED [None]
  - PAIN [None]
  - POST-TRAUMATIC STRESS DISORDER [None]
  - SEXUAL ABUSE [None]
  - THYROID DISORDER [None]
